FAERS Safety Report 11292188 (Version 1)
Quarter: 2015Q3

REPORT INFORMATION
  Report Type: Spontaneous
  Country: US (occurrence: None)
  Receive Date: 20150721
  Receipt Date: 20150721
  Transmission Date: 20151125
  Serious: Yes (Disabling)
  Sender: FDA-Public Use
  Company Number: None

PATIENT
  Age: 53 Year
  Sex: Female
  Weight: 69.4 kg

DRUGS (10)
  1. CALCIUM [Concomitant]
     Active Substance: CALCIUM
  2. PROBIOTICS [Concomitant]
     Active Substance: PROBIOTICS NOS
  3. COENZYME Q10 [Concomitant]
     Active Substance: UBIDECARENONE
  4. PROVIGIL [Concomitant]
     Active Substance: MODAFINIL
  5. MAGNESIUM [Concomitant]
     Active Substance: MAGNESIUM
  6. LOW DOSE NALTREXONE [Concomitant]
     Active Substance: NALTREXONE
  7. CIPRO [Suspect]
     Active Substance: CIPROFLOXACIN HYDROCHLORIDE
     Indication: BRONCHITIS
     Route: 048
  8. MULTIVITAMINS [Concomitant]
     Active Substance: VITAMINS
  9. KRILL OIL [Concomitant]
     Active Substance: DIETARY SUPPLEMENT
  10. CARNITINE [Concomitant]
     Active Substance: CARNITINE

REACTIONS (5)
  - Myalgia [None]
  - Urinary tract infection [None]
  - Neuropathy peripheral [None]
  - Tendon rupture [None]
  - Multiple sclerosis [None]

NARRATIVE: CASE EVENT DATE: 20110411
